FAERS Safety Report 9464100 (Version 2)
Quarter: 2013Q4

REPORT INFORMATION
  Report Type: Spontaneous
  Country: US (occurrence: US)
  Receive Date: 20130819
  Receipt Date: 20131115
  Transmission Date: 20140711
  Serious: Yes (Disabling, Other)
  Sender: FDA-Public Use
  Company Number: PHEH2013US017499

PATIENT
  Age: 55 Year
  Sex: Female

DRUGS (30)
  1. GILENYA [Suspect]
     Indication: MULTIPLE SCLEROSIS
     Dosage: 0.5 MG, QD
     Route: 048
     Dates: end: 20130303
  2. CORTEF                                  /CAN/ [Concomitant]
  3. METOLAZONE [Concomitant]
  4. PROPRANOLOL [Concomitant]
  5. COREG [Concomitant]
  6. WELLBUTRIN [Concomitant]
  7. NEXUM [Concomitant]
  8. FIBER [Concomitant]
  9. FOSAMAX [Concomitant]
  10. GEODON [Concomitant]
  11. TRILEPTAL [Concomitant]
  12. POTASSIUM [Concomitant]
  13. PREVACID [Concomitant]
  14. ELAVIL [Concomitant]
  15. PRAVASTATIN [Concomitant]
  16. METHYLPHENIDATE [Concomitant]
  17. PRO-AIR [Concomitant]
  18. PLAQUENIL [Concomitant]
  19. NUVIGIL [Concomitant]
  20. SINGULAIR [Concomitant]
  21. VITAMIN B12 [Concomitant]
  22. VIT D [Concomitant]
  23. GLUCOPHAGE [Concomitant]
  24. SPIRIVA [Concomitant]
  25. LASIX [Concomitant]
  26. DEPOPROVERA [Concomitant]
  27. MECLIZINE [Concomitant]
  28. LEVOTHYROXINE [Concomitant]
  29. PREMARIN [Concomitant]
  30. PAROXETINE [Concomitant]

REACTIONS (10)
  - Cystoid macular oedema [Unknown]
  - Retinal haemorrhage [Unknown]
  - Retinal vein occlusion [Unknown]
  - Blindness unilateral [Unknown]
  - Visual acuity reduced [Unknown]
  - C-reactive protein increased [Unknown]
  - Glycosylated haemoglobin increased [Unknown]
  - Red blood cell sedimentation rate increased [Unknown]
  - Activated partial thromboplastin time prolonged [Unknown]
  - Protein C increased [Unknown]
